FAERS Safety Report 9913477 (Version 1)
Quarter: 2014Q1

REPORT INFORMATION
  Report Type: Spontaneous
  Country: US (occurrence: None)
  Receive Date: 20140218
  Receipt Date: 20140218
  Transmission Date: 20141002
  Serious: Yes (Other)
  Sender: FDA-Public Use
  Company Number: None

PATIENT
  Age: 61 Year
  Sex: Female

DRUGS (1)
  1. COPAXONE? [Suspect]
     Indication: MULTIPLE SCLEROSIS
     Dates: start: 20131011

REACTIONS (2)
  - Erythema of eyelid [None]
  - Skin exfoliation [None]
